FAERS Safety Report 12490059 (Version 9)
Quarter: 2016Q3

REPORT INFORMATION
  Report Type: Report from Study
  Country: US (occurrence: US)
  Receive Date: 20160622
  Receipt Date: 20160829
  Transmission Date: 20161109
  Serious: Yes (Hospitalization)
  Sender: FDA-Public Use
  Company Number: US-ACTELION-A-US2016-138107

PATIENT
  Age: 56 Year
  Sex: Female

DRUGS (9)
  1. VELETRI [Suspect]
     Active Substance: EPOPROSTENOL
     Dosage: 33 NG/KG, PER MIN
     Route: 042
     Dates: start: 20160606
  2. UPTRAVI [Suspect]
     Active Substance: SELEXIPAG
     Indication: PULMONARY HYPERTENSION
     Dosage: 1600 MCG, BID
     Route: 048
  3. UPTRAVI [Suspect]
     Active Substance: SELEXIPAG
     Dosage: 200 MCG, BID
     Route: 048
     Dates: start: 20160209
  4. COUMADIN [Concomitant]
     Active Substance: WARFARIN SODIUM
  5. VELETRI [Suspect]
     Active Substance: EPOPROSTENOL
     Dosage: UNK
     Route: 042
     Dates: start: 20160526
  6. LETAIRIS [Suspect]
     Active Substance: AMBRISENTAN
     Indication: PRODUCT USED FOR UNKNOWN INDICATION
     Dosage: 10 MG, QD
     Route: 065
  7. UPTRAVI [Suspect]
     Active Substance: SELEXIPAG
     Dosage: 1600 MG, BID
     Route: 048
     Dates: start: 20160209
  8. VELETRI [Suspect]
     Active Substance: EPOPROSTENOL
     Indication: PULMONARY HYPERTENSION
     Dosage: 30 NG/KG, PER MIN
     Route: 042
     Dates: start: 20160606
  9. ADCIRCA [Concomitant]
     Active Substance: TADALAFIL

REACTIONS (16)
  - Haematoma [Unknown]
  - Dyspnoea [Unknown]
  - Diarrhoea [Unknown]
  - Renal failure [Unknown]
  - Transplant evaluation [Unknown]
  - Internal haemorrhage [Unknown]
  - Catheter site discharge [Unknown]
  - Endotracheal intubation [Unknown]
  - Fall [Unknown]
  - Wound [Unknown]
  - Weight decreased [Unknown]
  - Pneumonia [Unknown]
  - Drug ineffective [Unknown]
  - Haematoma evacuation [Unknown]
  - Compartment syndrome [Unknown]
  - Oxygen saturation abnormal [Unknown]
